FAERS Safety Report 6629510-3 (Version None)
Quarter: 2010Q1

REPORT INFORMATION
  Report Type: 
  Country: None (occurrence: None)
  Receive Date: 20100311
  Receipt Date: 20090721
  Transmission Date: 20100710
  Serious: No
  Sender: FDA-Public Use
  Company Number: US-BIOGENIDEC-2009BI022742

PATIENT
  Sex: Female

DRUGS (1)
  1. AVONEX [Suspect]
     Indication: MULTIPLE SCLEROSIS
     Route: 030
     Dates: start: 20010521

REACTIONS (5)
  - ABASIA [None]
  - DEPRESSED MOOD [None]
  - FRUSTRATION [None]
  - SELF-INJURIOUS IDEATION [None]
  - VICTIM OF SEXUAL ABUSE [None]
